FAERS Safety Report 22125368 (Version 1)
Quarter: 2023Q1

REPORT INFORMATION
  Report Type: Spontaneous
  Country: FR (occurrence: FR)
  Receive Date: 20230322
  Receipt Date: 20230322
  Transmission Date: 20230417
  Serious: Yes (Death)
  Sender: FDA-Public Use
  Company Number: None

PATIENT

DRUGS (4)
  1. PROPRANOLOL [Suspect]
     Active Substance: PROPRANOLOL HYDROCHLORIDE
     Indication: Toxicity to various agents
     Dosage: UNK
     Route: 048
     Dates: start: 20220406, end: 20220406
  2. HYDROXYZINE [Suspect]
     Active Substance: HYDROXYZINE HYDROCHLORIDE
     Indication: Toxicity to various agents
     Dosage: UNK
     Route: 048
     Dates: start: 20220406, end: 20220406
  3. LORMETAZEPAM [Suspect]
     Active Substance: LORMETAZEPAM
     Indication: Toxicity to various agents
     Dosage: UNK
     Route: 048
     Dates: start: 20220406, end: 20220406
  4. CLOMIPRAMINE [Suspect]
     Active Substance: CLOMIPRAMINE
     Indication: Toxicity to various agents
     Dosage: UNK
     Route: 048
     Dates: start: 20220406, end: 20220406

REACTIONS (5)
  - Coma [Fatal]
  - Cardiac arrest [Fatal]
  - Intentional overdose [Unknown]
  - Toxicity to various agents [Unknown]
  - Product use issue [Unknown]

NARRATIVE: CASE EVENT DATE: 20220406
